FAERS Safety Report 10629084 (Version 2)
Quarter: 2014Q4

REPORT INFORMATION
  Report Type: Spontaneous
  Country: US (occurrence: US)
  Receive Date: 20141205
  Receipt Date: 20141205
  Transmission Date: 20150529
  Serious: Yes (Other)
  Sender: FDA-Public Use
  Company Number: US-BRISTOL-MYERS SQUIBB COMPANY-21324108

PATIENT
  Age: 14 Year
  Sex: Male
  Weight: 90.7 kg

DRUGS (1)
  1. ABILIFY [Suspect]
     Active Substance: ARIPIPRAZOLE
     Dosage: INITIAL DOSE UNK.?RESTARTED:2.5 MG

REACTIONS (1)
  - Gynaecomastia [Unknown]
